FAERS Safety Report 6389061-0 (Version None)
Quarter: 2009Q4

REPORT INFORMATION
  Report Type: 
  Country: None (occurrence: None)
  Receive Date: 20091006
  Receipt Date: 20090923
  Transmission Date: 20100525
  Serious: Yes (Other)
  Sender: FDA-Public Use
  Company Number: CA-JNJCH-2009023861

PATIENT
  Sex: Male

DRUGS (3)
  1. MOTRIN ACTIVE PAIN RELIEVING PATCH [Suspect]
     Indication: BACK PAIN
     Dosage: TEXT:ONE PATCH FOR A FEW HOURS
     Route: 061
     Dates: start: 20090830, end: 20090830
  2. CELEBREX [Concomitant]
     Indication: DRUG USE FOR UNKNOWN INDICATION
     Dosage: TEXT:100 MG
     Route: 065
  3. OXYCODONE HCL AND ACETAMINOPHEN [Concomitant]
     Indication: DRUG USE FOR UNKNOWN INDICATION
     Dosage: TEXT:325 MG
     Route: 065

REACTIONS (4)
  - BACK PAIN [None]
  - CONDITION AGGRAVATED [None]
  - DRUG INEFFECTIVE [None]
  - PRODUCT QUALITY ISSUE [None]
